FAERS Safety Report 4336412-4 (Version None)
Quarter: 2004Q2

REPORT INFORMATION
  Report Type: 
  Country: None (occurrence: None)
  Receive Date: 20040407
  Receipt Date: 20040329
  Transmission Date: 20050107
  Serious: Yes (Other)
  Sender: FDA-Public Use
  Company Number: 2004-03-2189

PATIENT
  Sex: Male

DRUGS (1)
  1. CLARITIN-D [Suspect]
     Dosage: ORAL; 3 DOSE(S)
     Route: 048

REACTIONS (2)
  - RENAL FAILURE ACUTE [None]
  - SOLITARY KIDNEY [None]
